FAERS Safety Report 5196294-8 (Version None)
Quarter: 2007Q1

REPORT INFORMATION
  Report Type: 
  Country: None (occurrence: None)
  Receive Date: 20070102
  Receipt Date: 20061222
  Transmission Date: 20070707
  Serious: Yes (Congenital Anomaly, Other)
  Sender: FDA-Public Use
  Company Number: JP-PFIZER INC-2006154440

PATIENT

DRUGS (1)
  1. SULFASALAZINE [Suspect]

REACTIONS (7)
  - CAESAREAN SECTION [None]
  - CEREBRAL ATROPHY [None]
  - DRUG EXPOSURE DURING PREGNANCY [None]
  - FOETAL DISORDER [None]
  - NEONATAL ASPHYXIA [None]
  - SKIN DISORDER [None]
  - TERATOGENICITY [None]
